FAERS Safety Report 9283732 (Version 2)
Quarter: 2013Q2

REPORT INFORMATION
  Report Type: Spontaneous
  Country: LT (occurrence: LT)
  Receive Date: 20130510
  Receipt Date: 20130517
  Transmission Date: 20140414
  Serious: Yes (Other)
  Sender: FDA-Public Use
  Company Number: LT-GLAXOSMITHKLINE-B0890830A

PATIENT
  Sex: 0

DRUGS (5)
  1. LAMOTRIGINE [Suspect]
     Indication: EPILEPSY
     Route: 065
  2. TOPIRAMATE [Suspect]
     Indication: EPILEPSY
     Dosage: 150MG TWICE PER DAY
     Route: 065
  3. LEVETIRACETAM [Suspect]
     Indication: EPILEPSY
     Dosage: 2000MG PER DAY
     Route: 065
  4. VALPROATE [Suspect]
     Indication: EPILEPSY
     Route: 065
  5. OXCARBAZEPINE [Suspect]
     Indication: EPILEPSY
     Route: 065

REACTIONS (5)
  - Drug ineffective [Unknown]
  - Partial seizures [Unknown]
  - Epilepsy [Unknown]
  - Paraesthesia [Unknown]
  - Ill-defined disorder [Unknown]
